FAERS Safety Report 6468154-3 (Version None)
Quarter: 2009Q4

REPORT INFORMATION
  Report Type: 
  Country: None (occurrence: None)
  Receive Date: 20091127
  Receipt Date: 20091113
  Transmission Date: 20100525
  Serious: Yes (Hospitalization)
  Sender: FDA-Public Use
  Company Number: 8053795

PATIENT
  Age: 30 Year
  Sex: Female

DRUGS (10)
  1. CERTOLIZUMAB PEGOL [Suspect]
     Indication: RHEUMATOID ARTHRITIS
     Dosage: 1/2W SC
     Route: 058
     Dates: start: 20090511
  2. CERTOLIZUMAB PEGOL [Suspect]
     Indication: RHEUMATOID ARTHRITIS
     Dosage: 200 MG 1/2W SC
     Route: 058
     Dates: start: 20090826, end: 20091021
  3. METHOTREXATE [Concomitant]
  4. FOLIC ACID [Concomitant]
  5. MELOXICAM [Concomitant]
  6. PREDNISOLONE [Concomitant]
  7. LOXOPROFEN SODIUM [Concomitant]
  8. INDOMETHACIN [Concomitant]
  9. CLARITHROMYCIN [Concomitant]
  10. TEPRENONE [Concomitant]

REACTIONS (4)
  - ANIMAL BITE [None]
  - FEELING HOT [None]
  - INFECTIVE TENOSYNOVITIS [None]
  - PURULENT DISCHARGE [None]
